FAERS Safety Report 5009896-6 (Version None)
Quarter: 2006Q2

REPORT INFORMATION
  Report Type: 
  Country: None (occurrence: None)
  Receive Date: 20060524
  Receipt Date: 20060518
  Transmission Date: 20061013
  Serious: Yes (Hospitalization, Other)
  Sender: FDA-Public Use
  Company Number: PHHO2006JP08226

PATIENT
  Age: 74 Year
  Sex: Female
  Weight: 53 kg

DRUGS (7)
  1. DIOVAN [Suspect]
     Indication: HYPERTENSION
     Dosage: 80 MG, QD
     Route: 048
     Dates: start: 20030124, end: 20030426
  2. DIOVAN [Suspect]
     Dosage: 80 MG, QD
     Route: 048
     Dates: start: 20030530, end: 20030918
  3. PLETAL [Suspect]
     Indication: CEREBRAL INFARCTION
     Dosage: 200 MG/DAILY
     Route: 048
     Dates: start: 20030501, end: 20030817
  4. MECOBALAMIN [Concomitant]
  5. EPADEL [Concomitant]
     Indication: HYPERLIPIDAEMIA
  6. BENET [Concomitant]
     Indication: OSTEOPOROSIS
  7. URDESTON [Concomitant]
     Indication: CHOLELITHIASIS

REACTIONS (5)
  - ATRIAL FIBRILLATION [None]
  - CARDIAC FAILURE CONGESTIVE [None]
  - HEADACHE [None]
  - PARALYSIS [None]
  - THROMBOTIC STROKE [None]
